FAERS Safety Report 15976733 (Version 1)
Quarter: 2019Q1

REPORT INFORMATION
  Report Type: Spontaneous
  Country: FR (occurrence: FR)
  Receive Date: 20190218
  Receipt Date: 20190218
  Transmission Date: 20190418
  Serious: Yes (Hospitalization)
  Sender: FDA-Public Use
  Company Number: FR-JNJFOC-20190221294

PATIENT
  Age: 60 Year
  Sex: Female

DRUGS (2)
  1. FLECAINE [Concomitant]
     Active Substance: FLECAINIDE
     Route: 065
  2. XARELTO [Suspect]
     Active Substance: RIVAROXABAN
     Indication: ATRIAL FIBRILLATION
     Route: 048
     Dates: start: 201811

REACTIONS (1)
  - Cardiac failure [Unknown]
